FAERS Safety Report 15302358 (Version 1)
Quarter: 2018Q3

REPORT INFORMATION
  Report Type: Spontaneous
  Country: CN (occurrence: CN)
  Receive Date: 20180821
  Receipt Date: 20180821
  Transmission Date: 20181010
  Serious: Yes (Other)
  Sender: FDA-Public Use
  Company Number: CN-ELI_LILLY_AND_COMPANY-CN201808007010

PATIENT
  Age: 67 Year
  Sex: Male

DRUGS (1)
  1. HUMULIN R [Suspect]
     Active Substance: INSULIN HUMAN
     Indication: DIABETES MELLITUS
     Dosage: UNK, UNKNOWN
     Route: 065
     Dates: start: 2016

REACTIONS (3)
  - Blood glucose abnormal [Not Recovered/Not Resolved]
  - Retinal haemorrhage [Unknown]
  - Diabetic eye disease [Not Recovered/Not Resolved]

NARRATIVE: CASE EVENT DATE: 201806
